FAERS Safety Report 5212210-4 (Version None)
Quarter: 2006Q4

REPORT INFORMATION
  Report Type: 
  Country: None (occurrence: None)
  Receive Date: 20061115
  Receipt Date: 20060724
  Transmission Date: 20070319
  Serious: No
  Sender: FDA-Public Use
  Company Number: 200613935BWH

PATIENT
  Age: 78 Year
  Sex: Male
  Weight: 67.1324 kg

DRUGS (1)
  1. NEXAVAR [Suspect]
     Indication: RENAL CELL CARCINOMA STAGE UNSPECIFIED
     Dosage: 400 MG, BID, ORAL
     Route: 048
     Dates: start: 20060528

REACTIONS (9)
  - ALOPECIA [None]
  - DECREASED APPETITE [None]
  - DIZZINESS POSTURAL [None]
  - DYSPHONIA [None]
  - ERYTHEMA [None]
  - FATIGUE [None]
  - RASH [None]
  - RASH GENERALISED [None]
  - WEIGHT DECREASED [None]
